FAERS Safety Report 7162386-7 (Version None)
Quarter: 2010Q4

REPORT INFORMATION
  Report Type: 
  Country: None (occurrence: None)
  Receive Date: 20101215
  Receipt Date: 20091027
  Transmission Date: 20110411
  Serious: Yes (Other)
  Sender: FDA-Public Use
  Company Number: US-PFIZER INC-2009289860

PATIENT
  Sex: Female

DRUGS (2)
  1. LYRICA [Suspect]
  2. NEURONTIN [Suspect]

REACTIONS (2)
  - ASTHMA [None]
  - RESPIRATORY DISTRESS [None]
